FAERS Safety Report 19384010 (Version 3)
Quarter: 2021Q4

REPORT INFORMATION
  Report Type: Report from Study
  Country: GH (occurrence: GH)
  Receive Date: 20210607
  Receipt Date: 20211008
  Transmission Date: 20220304
  Serious: Yes (Other)
  Sender: FDA-Public Use
  Company Number: NVSC2021GH123795

PATIENT
  Age: 69 Year
  Sex: Male

DRUGS (8)
  1. SACUBITRIL\VALSARTAN [Suspect]
     Active Substance: SACUBITRIL\VALSARTAN
     Indication: Congestive cardiomyopathy
     Dosage: 50 MG, QD
     Route: 048
  2. CARVEDILOL [Concomitant]
     Active Substance: CARVEDILOL
     Indication: Product used for unknown indication
     Dosage: 12.5 MG, BID
     Route: 065
  3. ATORVASTATIN [Concomitant]
     Active Substance: ATORVASTATIN
     Indication: Product used for unknown indication
     Dosage: 10 MG, QD
     Route: 065
  4. CLOPIDOGREL [Concomitant]
     Active Substance: CLOPIDOGREL BISULFATE
     Indication: Product used for unknown indication
     Dosage: 75 MG, QD
     Route: 065
  5. IVABRADINE HYDROCHLORIDE [Concomitant]
     Active Substance: IVABRADINE HYDROCHLORIDE
     Indication: Product used for unknown indication
     Dosage: 5 MG, BID
     Route: 065
  6. FUROSEMIDE [Concomitant]
     Active Substance: FUROSEMIDE
     Indication: Product used for unknown indication
     Dosage: 80 MG, BID
     Route: 065
  7. TAMSULOSIN [Concomitant]
     Active Substance: TAMSULOSIN
     Indication: Product used for unknown indication
     Dosage: 400 MG, QD
     Route: 065
  8. GLICLAZIDE [Concomitant]
     Active Substance: GLICLAZIDE
     Indication: Product used for unknown indication
     Dosage: 60 MG, QD
     Route: 065

REACTIONS (4)
  - Typhoid fever [Not Recovered/Not Resolved]
  - Abdominal pain [Recovering/Resolving]
  - Eating disorder [Recovering/Resolving]
  - Product use in unapproved indication [Unknown]

NARRATIVE: CASE EVENT DATE: 20210527
